FAERS Safety Report 10607562 (Version 2)
Quarter: 2014Q4

REPORT INFORMATION
  Report Type: Spontaneous
  Country: DE (occurrence: DE)
  Receive Date: 20141125
  Receipt Date: 20141125
  Transmission Date: 20150529
  Serious: Yes (Other)
  Sender: FDA-Public Use
  Company Number: DE-BRISTOL-MYERS SQUIBB COMPANY-20739405

PATIENT
  Age: 1 Month
  Sex: Male

DRUGS (2)
  1. ABILIFY [Suspect]
     Active Substance: ARIPIPRAZOLE
     Route: 064
  2. QUETIAPINE [Suspect]
     Active Substance: QUETIAPINE
     Route: 064

REACTIONS (5)
  - Cardiac disorder [Unknown]
  - Bradycardia [Unknown]
  - Small for dates baby [Unknown]
  - Foetal exposure during pregnancy [Unknown]
  - Joint dislocation [Unknown]
